FAERS Safety Report 9841671 (Version 2)
Quarter: 2014Q3

REPORT INFORMATION
  Report Type: Spontaneous
  Country: US (occurrence: US)
  Receive Date: 20140124
  Receipt Date: 20140815
  Transmission Date: 20150326
  Serious: Yes (Hospitalization, Other)
  Sender: FDA-Public Use
  Company Number: US-009507513-1401USA010075

PATIENT
  Sex: Female

DRUGS (1)
  1. NUVARING [Suspect]
     Active Substance: ETHINYL ESTRADIOL\ETONOGESTREL
     Dosage: UNK
     Route: 067

REACTIONS (17)
  - Craniotomy [Unknown]
  - Transverse sinus thrombosis [Unknown]
  - Lumboperitoneal shunt [Unknown]
  - Brain operation [Unknown]
  - Coagulation factor VIII level increased [Unknown]
  - Depression [Unknown]
  - Craniotomy [Unknown]
  - Haemangioma [Unknown]
  - Lymphadenopathy [Unknown]
  - Protein S decreased [Unknown]
  - Lumboperitoneal shunt [Unknown]
  - Vision blurred [Unknown]
  - Mental status changes [Unknown]
  - Craniotomy [Unknown]
  - Craniotomy [Unknown]
  - Pulmonary embolism [Unknown]
  - Antiphospholipid antibodies positive [Unknown]

NARRATIVE: CASE EVENT DATE: 2006
